FAERS Safety Report 10509197 (Version 1)
Quarter: 2014Q4

REPORT INFORMATION
  Report Type: Report from Study
  Country: US (occurrence: US)
  Receive Date: 20141009
  Receipt Date: 20141009
  Transmission Date: 20150528
  Serious: Yes (Hospitalization)
  Sender: FDA-Public Use
  Company Number: US-ABBVIE-14P-163-1290511-00

PATIENT
  Sex: Female

DRUGS (1)
  1. LUPRON DEPOT [Suspect]
     Active Substance: LEUPROLIDE ACETATE
     Indication: ENDOMETRIOSIS
     Route: 065
     Dates: start: 2012, end: 2012

REACTIONS (3)
  - Weight increased [Recovered/Resolved]
  - Endometriosis [Not Recovered/Not Resolved]
  - Adhesion [Recovered/Resolved]

NARRATIVE: CASE EVENT DATE: 2012
